FAERS Safety Report 22237750 (Version 1)
Quarter: 2023Q2

REPORT INFORMATION
  Report Type: Other
  Country: CA (occurrence: CA)
  Receive Date: 20230421
  Receipt Date: 20230421
  Transmission Date: 20230722
  Serious: Yes (Other)
  Sender: FDA-Public Use
  Company Number: CA-CELLTRION INC.-2023CA008076

PATIENT

DRUGS (10)
  1. RITUXIMAB [Suspect]
     Active Substance: RITUXIMAB
     Indication: Rheumatoid arthritis
     Dosage: 1000.0 MILLIGRAM 1 EVERY 15 DAYS
     Route: 041
  2. CYCLOBENZAPRINE HYDROCHLORIDE [Concomitant]
     Active Substance: CYCLOBENZAPRINE HYDROCHLORIDE
  3. ALLOPURINOL [Concomitant]
     Active Substance: ALLOPURINOL
  4. FOLIC ACID [Concomitant]
     Active Substance: FOLIC ACID
  5. GRAVOL [Concomitant]
     Active Substance: DIMENHYDRINATE
     Dosage: 25.0 MILLIGRAM
     Route: 065
  6. METHOTREXATE [Concomitant]
     Active Substance: METHOTREXATE
     Route: 048
  7. ONDANSETRON [Concomitant]
     Active Substance: ONDANSETRON
  8. TEVA TRIAMTERENE/HCTZ [Concomitant]
  9. TYLENOL [Concomitant]
     Active Substance: ACETAMINOPHEN
  10. ZOFRAN [Concomitant]
     Active Substance: ONDANSETRON HYDROCHLORIDE
     Dosage: 8.0 MILLIGRAM
     Route: 065

REACTIONS (3)
  - COVID-19 [Unknown]
  - Pneumonia [Unknown]
  - Off label use [Unknown]
